FAERS Safety Report 16048634 (Version 1)
Quarter: 2019Q1

REPORT INFORMATION
  Report Type: Spontaneous
  Country: US (occurrence: US)
  Receive Date: 20190307
  Receipt Date: 20190307
  Transmission Date: 20190418
  Serious: No
  Sender: FDA-Public Use
  Company Number: US-SA-2019SA061923

PATIENT

DRUGS (8)
  1. PROCHLORPERAZINE. [Suspect]
     Active Substance: PROCHLORPERAZINE
     Dosage: UNK UNK, UNK
     Route: 065
  2. METOCLOPRAMIDE HYDROCHLORIDE. [Suspect]
     Active Substance: METOCLOPRAMIDE HYDROCHLORIDE
     Dosage: UNK UNK, UNK
     Route: 065
  3. SULFA [SULFADIAZINE] [Suspect]
     Active Substance: SULFADIAZINE
     Dosage: UNK UNK, UNK
     Route: 065
  4. ETHYL ESTRENOL [Suspect]
     Active Substance: ETHYLESTRENOL
     Dosage: UNK UNK, UNK
     Route: 065
  5. ERYTHROMYCIN BASE [Suspect]
     Active Substance: ERYTHROMYCIN
     Dosage: UNK UNK, UNK
     Route: 065
  6. ARAVA [Suspect]
     Active Substance: LEFLUNOMIDE
     Route: 065
  7. LEVONORGESTREL. [Suspect]
     Active Substance: LEVONORGESTREL
     Dosage: UNK UNK, UNK
  8. METHOTREXATE. [Suspect]
     Active Substance: METHOTREXATE
     Dosage: UNK UNK, UNK
     Route: 065

REACTIONS (3)
  - Nausea [Unknown]
  - Vomiting [Unknown]
  - Drug hypersensitivity [Unknown]
